FAERS Safety Report 8134002-9 (Version None)
Quarter: 2012Q1

REPORT INFORMATION
  Report Type: 
  Country: None (occurrence: None)
  Receive Date: 20120213
  Receipt Date: 20120203
  Transmission Date: 20120608
  Serious: Yes (Disabling, Other)
  Sender: FDA-Public Use
  Company Number: US-ASTRAZENECA-2012SE07956

PATIENT
  Sex: Female

DRUGS (1)
  1. SEROQUEL [Suspect]
     Indication: DEPRESSION
     Route: 048
     Dates: start: 20020101

REACTIONS (8)
  - WEIGHT INCREASED [None]
  - MENTAL DISABILITY [None]
  - CONDITION AGGRAVATED [None]
  - SUICIDAL IDEATION [None]
  - DEPRESSION [None]
  - PARANOIA [None]
  - MILD MENTAL RETARDATION [None]
  - PHOBIA [None]
